FAERS Safety Report 6904747-4 (Version None)
Quarter: 2010Q3

REPORT INFORMATION
  Report Type: 
  Country: None (occurrence: None)
  Receive Date: 20100804
  Receipt Date: 20100726
  Transmission Date: 20110219
  Serious: No
  Sender: FDA-Public Use
  Company Number: US-BIOGENIDEC-2010BI025256

PATIENT
  Age: 44 Year
  Sex: Female

DRUGS (3)
  1. AVONEX [Suspect]
     Indication: MULTIPLE SCLEROSIS
     Route: 030
     Dates: start: 19991101
  2. AVONEX [Suspect]
     Route: 030
     Dates: end: 20100601
  3. AVONEX [Suspect]
     Route: 030
     Dates: start: 20100701

REACTIONS (3)
  - BRONCHITIS [None]
  - COUGH [None]
  - WHEEZING [None]
